FAERS Safety Report 7804348-X (Version None)
Quarter: 2011Q4

REPORT INFORMATION
  Report Type: 
  Country: None (occurrence: None)
  Receive Date: 20111010
  Receipt Date: 20111004
  Transmission Date: 20120403
  Serious: Yes (Other)
  Sender: FDA-Public Use
  Company Number: US-BRISTOL-MYERS SQUIBB COMPANY-16130742

PATIENT
  Age: 67 Year
  Sex: Male
  Weight: 89 kg

DRUGS (4)
  1. CISPLATIN [Suspect]
     Indication: HEAD AND NECK CANCER
     Dates: start: 20110425
  2. DOCETAXEL [Suspect]
     Indication: HEAD AND NECK CANCER
     Dates: start: 20110425
  3. ERBITUX [Suspect]
     Indication: HEAD AND NECK CANCER
     Dates: start: 20110425
  4. PLAVIX [Suspect]
     Indication: STENT PLACEMENT

REACTIONS (4)
  - GLOMERULONEPHRITIS [None]
  - RENAL FAILURE [None]
  - ANAEMIA [None]
  - THROMBOCYTOPENIA [None]
